FAERS Safety Report 4698134-X (Version None)
Quarter: 2005Q2

REPORT INFORMATION
  Report Type: 
  Country: None (occurrence: None)
  Receive Date: 20050621
  Receipt Date: 20050608
  Transmission Date: 20051028
  Serious: Yes (Hospitalization, Disabling)
  Sender: FDA-Public Use
  Company Number: 2005075993

PATIENT
  Age: 64 Year
  Sex: Female
  Weight: 54.4316 kg

DRUGS (10)
  1. BEXTRA [Suspect]
     Indication: ARTHRITIS
     Dosage: 20 MG (20 MG, 1 IN 1 D), ORAL
     Route: 048
     Dates: end: 20050401
  2. DILANTIN [Concomitant]
  3. PHENOBARBITAL TAB [Concomitant]
  4. LIPITOR [Concomitant]
  5. DITROPAN [Concomitant]
  6. VITAMINS (VITAMINS) [Concomitant]
  7. POTASSIUM (POTASSIUM) [Concomitant]
  8. CLIMARA [Concomitant]
  9. PROGESTERONE [Concomitant]
  10. LEXAPRO [Concomitant]

REACTIONS (4)
  - CEREBRAL ARTERIOVENOUS MALFORMATION HAEMORRHAGIC [None]
  - CEREBROVASCULAR ACCIDENT [None]
  - CONVULSION [None]
  - DISEASE RECURRENCE [None]
